APPROVED DRUG PRODUCT: ULORIC
Active Ingredient: FEBUXOSTAT
Strength: 40MG
Dosage Form/Route: TABLET;ORAL
Application: N021856 | Product #001 | TE Code: AB
Applicant: TAKEDA PHARMACEUTICALS USA INC
Approved: Feb 13, 2009 | RLD: Yes | RS: No | Type: RX

PATENTS:
Patent 9107912 | Expires: Sep 8, 2031
Patent 8372872 | Expires: Sep 8, 2031